FAERS Safety Report 13555280 (Version 1)
Quarter: 2017Q2

REPORT INFORMATION
  Report Type: Report from Study
  Country: None (occurrence: US)
  Receive Date: 20170517
  Receipt Date: 20170517
  Transmission Date: 20170830
  Serious: Yes (Other)
  Sender: FDA-Public Use
  Company Number: US-ABBVIE-17K-163-1969251-00

PATIENT
  Sex: Male

DRUGS (1)
  1. ANDROGEL [Suspect]
     Active Substance: TESTOSTERONE
     Indication: PRODUCT USED FOR UNKNOWN INDICATION
     Route: 061
     Dates: start: 2015, end: 201704

REACTIONS (5)
  - Dyspnoea [Unknown]
  - Vascular occlusion [Recovering/Resolving]
  - Hypertension [Unknown]
  - Asthma [Unknown]
  - Chest discomfort [Unknown]

NARRATIVE: CASE EVENT DATE: 2016
